FAERS Safety Report 21602985 (Version 1)
Quarter: 2022Q4

REPORT INFORMATION
  Report Type: Report from Study
  Country: US (occurrence: US)
  Receive Date: 20221116
  Receipt Date: 20221116
  Transmission Date: 20230112
  Serious: No
  Sender: FDA-Public Use
  Company Number: US-ABBVIE-4197090

PATIENT
  Sex: Female

DRUGS (2)
  1. ORIAHNN [Suspect]
     Active Substance: ELAGOLIX SODIUM\ESTRADIOL\NORETHINDRONE
     Indication: Product used for unknown indication
     Dosage: 300-1-0 5MG CAPSULE- TAKE 1 MORNING CAPSULE IN THE AM AND 1 EVENING CAPSULE IN THE PM AS DIRECTED
     Route: 048
  2. ORIAHNN [Suspect]
     Active Substance: ELAGOLIX SODIUM\ESTRADIOL\NORETHINDRONE
     Indication: Product used for unknown indication
     Dosage: 300-1-0 5MG CAPSULE- TAKE 1 MORNING CAPSULE IN THE AM AND 1 EVENING CAPSULE IN THE PM AS DIRECTED
     Route: 048

REACTIONS (2)
  - Pain in extremity [Unknown]
  - Alopecia [Unknown]
